FAERS Safety Report 9700284 (Version 4)
Quarter: 2014Q1

REPORT INFORMATION
  Report Type: Report from Study
  Country: JP (occurrence: JP)
  Receive Date: 20131121
  Receipt Date: 20140218
  Transmission Date: 20141002
  Serious: Yes (Hospitalization, Other)
  Sender: FDA-Public Use
  Company Number: JP-JNJFOC-20131109419

PATIENT
  Age: 59 Year
  Sex: Male
  Weight: 77 kg

DRUGS (11)
  1. SIMPONI [Suspect]
     Indication: RHEUMATOID ARTHRITIS
     Route: 058
     Dates: start: 20120319, end: 20120319
  2. SIMPONI [Suspect]
     Indication: RHEUMATOID ARTHRITIS
     Route: 058
     Dates: start: 20120417, end: 20120417
  3. SIMPONI [Suspect]
     Indication: RHEUMATOID ARTHRITIS
     Route: 058
     Dates: start: 20120605, end: 20120605
  4. PREDONINE [Suspect]
     Indication: RHEUMATOID ARTHRITIS
     Route: 048
     Dates: start: 20120501
  5. PREDONINE [Suspect]
     Indication: RHEUMATOID ARTHRITIS
     Route: 048
     Dates: end: 20120417
  6. METHOTREXATE [Concomitant]
     Indication: RHEUMATOID ARTHRITIS
     Route: 065
     Dates: start: 20120619
  7. METHOTREXATE [Concomitant]
     Indication: RHEUMATOID ARTHRITIS
     Route: 065
     Dates: start: 20090626, end: 20120501
  8. BUCILLAMINE [Concomitant]
     Indication: RHEUMATOID ARTHRITIS
     Route: 065
     Dates: end: 20120403
  9. MOBIC [Concomitant]
     Indication: RHEUMATOID ARTHRITIS
     Route: 048
  10. GASTER D [Concomitant]
     Indication: PROPHYLAXIS
     Route: 048
  11. FOLIAMIN [Concomitant]
     Indication: PROPHYLAXIS
     Route: 065

REACTIONS (3)
  - Renal failure acute [Recovering/Resolving]
  - Gastroenteritis [Unknown]
  - Dehydration [Unknown]
